FAERS Safety Report 5597747-0 (Version None)
Quarter: 2007Q4

REPORT INFORMATION
  Report Type: 
  Country: None (occurrence: None)
  Receive Date: 20071221
  Receipt Date: 20070802
  Transmission Date: 20080405
  Serious: No
  Sender: FDA-Public Use
  Company Number: US-CVT-070144

PATIENT
  Age: 77 Year
  Sex: Male

DRUGS (19)
  1. RANEXA [Suspect]
     Dosage: 500 MG, BID, ORAL ; 500 MG, QOD, ORAL
     Route: 048
     Dates: start: 20070629, end: 20070703
  2. RANEXA [Suspect]
     Dosage: 500 MG, BID, ORAL ; 500 MG, QOD, ORAL
     Route: 048
     Dates: start: 20070706
  3. INSULIN /00030501/ (INSULIN) [Concomitant]
  4. NPH INSULIN (INSULIN INJECTION, ISOPHANE) [Concomitant]
  5. OMEPRAZOLE [Concomitant]
  6. PLAVIX [Concomitant]
  7. SYNTHROID [Concomitant]
  8. FUROSEMIDE/00032601/ (FUROSEMIDE) [Concomitant]
  9. SPIRONOLACTONE [Concomitant]
  10. PROSCAR [Concomitant]
  11. ISOSORBIDE (ISOSORBIDE) [Concomitant]
  12. ASPIRIN [Concomitant]
  13. COENZYME Q10 [Concomitant]
  14. LIPITOR [Concomitant]
  15. TOPROL-XL [Concomitant]
  16. TERAZOSIN HCL [Concomitant]
  17. ALBUTEROL [Concomitant]
  18. IPRATROPIUM BROMIDE [Concomitant]
  19. PREDNISONE /00044701/ (PREDNISONE) [Concomitant]

REACTIONS (1)
  - SKIN EXFOLIATION [None]
